FAERS Safety Report 6500731-3 (Version None)
Quarter: 2009Q4

REPORT INFORMATION
  Report Type: 
  Country: None (occurrence: None)
  Receive Date: 20091216
  Receipt Date: 20090122
  Transmission Date: 20100525
  Serious: No
  Sender: FDA-Public Use
  Company Number: A0765376A

PATIENT
  Age: 43 Year
  Sex: Female

DRUGS (2)
  1. NICOTINE POLACRILEX [Suspect]
     Indication: SMOKING CESSATION THERAPY
     Dates: start: 20081225, end: 20090110
  2. NICOTINE POLACRILEX [Suspect]
     Indication: SMOKING CESSATION THERAPY
     Dates: start: 20090110

REACTIONS (9)
  - CAUSTIC INJURY [None]
  - DRY THROAT [None]
  - DYSPHONIA [None]
  - GLOSSODYNIA [None]
  - INTENTIONAL DRUG MISUSE [None]
  - OROPHARYNGEAL PAIN [None]
  - THERMAL BURN [None]
  - THROAT IRRITATION [None]
  - TONGUE DISORDER [None]
